FAERS Safety Report 9397699 (Version 1)
Quarter: 2013Q3

REPORT INFORMATION
  Report Type: Spontaneous
  Country: US (occurrence: None)
  Receive Date: 20130711
  Receipt Date: 20130711
  Transmission Date: 20140515
  Serious: No
  Sender: FDA-Public Use
  Company Number: None

PATIENT
  Age: 11 Year
  Sex: Female
  Weight: 54.43 kg

DRUGS (1)
  1. VYVANSE [Suspect]
     Indication: DEPRESSION
     Dosage: 1 PER DAY
     Route: 048
     Dates: start: 20090901, end: 20091029

REACTIONS (2)
  - Depression [None]
  - Crying [None]
